FAERS Safety Report 15651568 (Version 1)
Quarter: 2018Q4

REPORT INFORMATION
  Report Type: Spontaneous
  Country: GB (occurrence: GB)
  Receive Date: 20181123
  Receipt Date: 20181123
  Transmission Date: 20190205
  Serious: Yes (Death, Hospitalization)
  Sender: FDA-Public Use
  Company Number: GB-PURDUE-GBR-2018-0061799

PATIENT
  Age: 80 Year
  Sex: Female

DRUGS (21)
  1. ENOXAPARIN [Concomitant]
     Active Substance: ENOXAPARIN
  2. CANDESARTAN CILEXETIL. [Concomitant]
     Active Substance: CANDESARTAN CILEXETIL
  3. FERROUS FUMARATE [Concomitant]
     Active Substance: FERROUS FUMARATE
  4. UNIPHYLLIN CONTINUS [Suspect]
     Active Substance: THEOPHYLLINE ANHYDROUS
     Indication: CHRONIC OBSTRUCTIVE PULMONARY DISEASE
     Route: 048
     Dates: start: 20150601, end: 20181025
  5. DOXAZOSIN [Concomitant]
     Active Substance: DOXAZOSIN\DOXAZOSIN MESYLATE
  6. BISOPROLOL [Concomitant]
     Active Substance: BISOPROLOL
  7. CLOPIDOGREL [Concomitant]
     Active Substance: CLOPIDOGREL BISULFATE
  8. CALCIUM CARBONATE W/COLECALCIFEROL [Concomitant]
     Active Substance: CALCIUM CARBONATE\CHOLECALCIFEROL
  9. LACRI-LUBE [Concomitant]
  10. AMITRIPTYLINE HYDROCHLORIDE. [Concomitant]
     Active Substance: AMITRIPTYLINE HYDROCHLORIDE
  11. SALBUTAMOL [Concomitant]
     Active Substance: ALBUTEROL
  12. CLARITHROMYCIN. [Concomitant]
     Active Substance: CLARITHROMYCIN
  13. SODIUM CHLORIDE. [Concomitant]
     Active Substance: SODIUM CHLORIDE
  14. HYOSCINE BUTYLBROMIDE [Concomitant]
     Active Substance: BUTYLSCOPOLAMINE
  15. DIGOXIN. [Concomitant]
     Active Substance: DIGOXIN
  16. CO AMOXICLAV [Concomitant]
     Active Substance: AMOXICILLIN\CLAVULANIC ACID
  17. OMEPRAZOLE. [Concomitant]
     Active Substance: OMEPRAZOLE
  18. COCODAMOL [Concomitant]
     Active Substance: ACETAMINOPHEN\CODEINE PHOSPHATE
  19. MAGNESIUM [Concomitant]
     Active Substance: MAGNESIUM
  20. ATORVASTATIN [Concomitant]
     Active Substance: ATORVASTATIN
  21. AMLODIPINE [Concomitant]
     Active Substance: AMLODIPINE BESYLATE

REACTIONS (7)
  - Atrial fibrillation [Fatal]
  - Acute kidney injury [Fatal]
  - Confusional state [Fatal]
  - Aspartate aminotransferase increased [Fatal]
  - Agitation [Fatal]
  - Lower respiratory tract infection [Fatal]
  - Ventricular extrasystoles [Fatal]

NARRATIVE: CASE EVENT DATE: 20181024
